FAERS Safety Report 9173705 (Version 1)
Quarter: 2013Q1

REPORT INFORMATION
  Report Type: Spontaneous
  Country: FR (occurrence: None)
  Receive Date: 20130318
  Receipt Date: 20130318
  Transmission Date: 20140127
  Serious: Yes (Hospitalization)
  Sender: FDA-Public Use
  Company Number: INDI-FR-2013-0019

PATIENT
  Age: 68 Year
  Sex: Female

DRUGS (11)
  1. CHRONO-INDOCID [Suspect]
     Route: 048
     Dates: start: 201211, end: 201211
  2. METOJECT [Suspect]
     Route: 058
     Dates: start: 201211
  3. CORTANCYL (PREDNISONE) [Concomitant]
  4. OXYNORMORO (OXYCODONE HYDROCHLORIDE) (10 MILLIGRAM, TABLETS) (OXYCODONE HYDROCHLORIDE) [Concomitant]
  5. OXYCONTIN LP (OXYCODONE HYDROCHLORIDE) (30 MILLIGRAM, UNKNOWN) (OXYCODONE HYDROCHLORIDE) [Concomitant]
  6. TEMERIT (NEBIVOLOL HYDROCHLORIDE) (UNKNOWN) (NEBIVOLOL HYDROCHLORIDE) [Concomitant]
  7. LASILIX (FUROSEMIDE) (UNKNOWN) (FUROSEMIDE) [Concomitant]
  8. SEROPRAM (CITALOPRAM HYDROBROMIDE) (UNKNOWN) (CITALOPRAM HYDROBROMIDE) [Concomitant]
  9. SERESTA (OXAZEPAM) (50 MILLIGRAM, UNKNOWN) (OXAZEPAM) [Concomitant]
  10. INEXIUM (ESOMEPRAZOLE MAGNESIUM) (UNKNOWN) (ESOMEPRAZOLE MAGNESIUM) [Concomitant]
  11. DOLIPRANE (PARACETAMOL) (500 MILLIGRAM, CAPSULES) (PARACETAMOL) [Concomitant]

REACTIONS (5)
  - Pyelonephritis [None]
  - Pancytopenia [None]
  - Agranulocytosis [None]
  - Renal failure [None]
  - Infection [None]
